FAERS Safety Report 16134833 (Version 3)
Quarter: 2019Q2

REPORT INFORMATION
  Report Type: Report from Study
  Country: US (occurrence: US)
  Receive Date: 20190329
  Receipt Date: 20190514
  Transmission Date: 20190711
  Serious: Yes (Other)
  Sender: FDA-Public Use
  Company Number: US-AMGEN INC.-USASL2019047964

PATIENT
  Age: 45 Year
  Sex: Female
  Weight: 73.02 kg

DRUGS (15)
  1. AIMOVIG [Suspect]
     Active Substance: ERENUMAB-AOOE
     Indication: MIGRAINE WITH AURA
     Dosage: 140 MILLIGRAM, QMO (TWO SHOTS AT A TIME)
     Route: 058
     Dates: start: 20181128, end: 20181228
  2. DULOXETINE. [Concomitant]
     Active Substance: DULOXETINE
     Indication: ANXIETY
     Dosage: 30 MILLIGRAM, QD; 30 MG DELAYED RELEASE CAP, 1 QD; 60 MG CAPSULE 1 QD
     Route: 048
  3. BUPIVACAINE. [Concomitant]
     Active Substance: BUPIVACAINE
     Dosage: 0.5 PERCENT IN 0.9 PERCENT SODIUM CHLORIDE INJECTION; 10 ML BY INJECTION ROUTE
  4. PROMETHAZINE [Concomitant]
     Active Substance: PROMETHAZINE\PROMETHAZINE HYDROCHLORIDE
     Indication: NAUSEA
     Dosage: 25 MILLIGRAM, BID AS NECESSARY; 1 TABLET BY MOUTH EVERY 4 HOURS AS NEEDED
     Route: 054
  5. MIGRANAL [Concomitant]
     Active Substance: DIHYDROERGOTAMINE MESYLATE
     Indication: HEADACHE
     Dosage: 4 MILLIGRAM PER MILLILITREONE SPRAY ONE TIME IN EACH NOSTRIL AND REPEAT IN 15MIN
     Route: 045
  6. ESCITALOPRAM OXALATE. [Concomitant]
     Active Substance: ESCITALOPRAM OXALATE
     Dosage: 20 MILLIGRAM, QD
     Route: 048
  7. BACLOFEN. [Concomitant]
     Active Substance: BACLOFEN
     Dosage: 20 MILLIGRAM, TID
     Route: 048
  8. BOTOX [Concomitant]
     Active Substance: ONABOTULINUMTOXINA
     Indication: HEADACHE
     Dosage: 200 UNIT, EVERY 12 WEEKS
     Route: 030
  9. RELPAX [Concomitant]
     Active Substance: ELETRIPTAN HYDROBROMIDE
     Indication: MIGRAINE
     Dosage: 40 MILLIGRAM, 1-2 TABLET AS NEEDED, NO MORE THAN 2 IN 24 HOURS
     Route: 048
  10. TIZANIDINE. [Concomitant]
     Active Substance: TIZANIDINE
     Dosage: 4 MILLIGRAM, TWICE OR THRICE DAILY AS NECESSARY
     Route: 048
  11. BUTALBITAL;CAFFEINE;CODEINE;PARACETAMOL [Concomitant]
     Indication: HEADACHE
     Dosage: 50-325/40/30 MG, 1 DOSAGE FORM, QD, AS NEEDED
     Route: 065
  12. PROPRANOLOL [Concomitant]
     Active Substance: PROPRANOLOL HYDROCHLORIDE
     Dosage: 120 MILLIGRAM, QD
     Route: 048
  13. PROMETHAZINE [Concomitant]
     Active Substance: PROMETHAZINE\PROMETHAZINE HYDROCHLORIDE
     Indication: VOMITING
  14. QUDEXY XR [Concomitant]
     Active Substance: TOPIRAMATE
     Dosage: 200 MG 1 CAPSULE DAILY, TAKES WITH 50 MG, 50 MG 1 CAPSULE DAILY TAKES WITH 200 MG
     Route: 048
  15. ZONISAMIDE. [Concomitant]
     Active Substance: ZONISAMIDE
     Dosage: 100 MILLIGRAM 1 TO 2 CAPSULE MORNING AND 2 IN EVENING
     Route: 048

REACTIONS (4)
  - Laryngeal oedema [Recovered/Resolved]
  - Influenza [Unknown]
  - Urticaria [Recovered/Resolved]
  - Pruritus [Unknown]

NARRATIVE: CASE EVENT DATE: 201811
